FAERS Safety Report 5470547-8 (Version None)
Quarter: 2007Q3

REPORT INFORMATION
  Report Type: 
  Country: None (occurrence: None)
  Receive Date: 20070928
  Receipt Date: 20070920
  Transmission Date: 20080115
  Serious: Yes (Other)
  Sender: FDA-Public Use
  Company Number: PHEH2007US12645

PATIENT
  Age: 5 Year
  Sex: Male
  Weight: 16.326 kg

DRUGS (1)
  1. EXJADE [Suspect]
     Dosage: 20 MG, UNK
     Route: 048
     Dates: start: 20060412, end: 20060920

REACTIONS (2)
  - CREATININE URINE INCREASED [None]
  - URINE ABNORMALITY [None]
